FAERS Safety Report 13905042 (Version 1)
Quarter: 2017Q3

REPORT INFORMATION
  Report Type: Spontaneous
  Country: US (occurrence: None)
  Receive Date: 20170820
  Receipt Date: 20170820
  Transmission Date: 20171127
  Serious: No
  Sender: FDA-Public Use
  Company Number: None

PATIENT
  Age: 52 Year
  Sex: Male

DRUGS (1)
  1. LAMIVUD/ZIDOVUD TAB 150/300 [Suspect]
     Active Substance: LAMIVUDINE\ZIDOVUDINE

REACTIONS (3)
  - Product substitution issue [None]
  - Anal incontinence [None]
  - Diarrhoea [None]

NARRATIVE: CASE EVENT DATE: 20170501
